FAERS Safety Report 9765738 (Version 1)
Quarter: 2013Q4

REPORT INFORMATION
  Report Type: Spontaneous
  Country: US (occurrence: US)
  Receive Date: 20131217
  Receipt Date: 20131217
  Transmission Date: 20140711
  Serious: No
  Sender: FDA-Public Use
  Company Number: US-BIOGENIDEC-2013BI115414

PATIENT
  Age: 38 Year
  Sex: Female

DRUGS (13)
  1. TECFIDERA [Suspect]
     Indication: MULTIPLE SCLEROSIS
     Route: 048
     Dates: start: 20131101
  2. TECFIDERA [Suspect]
     Indication: MULTIPLE SCLEROSIS
     Route: 048
     Dates: start: 20131101
  3. TECFIDERA [Suspect]
     Indication: MULTIPLE SCLEROSIS
     Route: 048
     Dates: start: 20131101
  4. TECFIDERA [Suspect]
     Indication: MULTIPLE SCLEROSIS
     Route: 048
  5. RELPAX [Concomitant]
     Dates: start: 20131101
  6. LOESTRIN [Concomitant]
     Dates: start: 20131101
  7. ASPIRIN [Concomitant]
     Dates: start: 20131101
  8. DIAZEPAM [Concomitant]
     Dates: start: 20131101
  9. PANTOPRAZOLE [Concomitant]
     Dates: start: 20131101
  10. LEXAPRO [Concomitant]
     Dates: start: 20131101
  11. VIT D [Concomitant]
     Dates: start: 20131101
  12. FISH OIL [Concomitant]
  13. POTASSIUM GLUCONATE [Concomitant]

REACTIONS (3)
  - Underdose [Unknown]
  - Abdominal pain [Not Recovered/Not Resolved]
  - Nausea [Not Recovered/Not Resolved]
